FAERS Safety Report 6703482-5 (Version None)
Quarter: 2010Q2

REPORT INFORMATION
  Report Type: 
  Country: None (occurrence: None)
  Receive Date: 20100430
  Receipt Date: 20100423
  Transmission Date: 20101027
  Serious: Yes (Hospitalization, Other)
  Sender: FDA-Public Use
  Company Number: US-ASTRAZENECA-2010SE14949

PATIENT
  Age: 933 Month
  Sex: Male
  Weight: 75.3 kg

DRUGS (14)
  1. SYMBICORT [Suspect]
     Indication: LUNG DISORDER
     Dosage: 160/4.5 TWO PUFFS
     Route: 055
     Dates: start: 20090101
  2. SYMBICORT [Suspect]
     Indication: ALVEOLITIS ALLERGIC
     Dosage: 160/4.5 TWO PUFFS
     Route: 055
     Dates: start: 20090101
  3. SYMBICORT [Suspect]
     Indication: RESPIRATORY TRACT INFECTION FUNGAL
     Dosage: 160/4.5 TWO PUFFS
     Route: 055
     Dates: start: 20090101
  4. CHEMOTHERAPY [Suspect]
     Indication: BLADDER CANCER
     Dates: start: 20081201, end: 20090901
  5. LASIX [Concomitant]
  6. METOLAZONE [Concomitant]
  7. CO Q 10 [Concomitant]
  8. TUMS [Concomitant]
  9. CALCITRIOL [Concomitant]
  10. CITRUCEL [Concomitant]
  11. METOPROLOL [Concomitant]
  12. MULTI-VITAMINS [Concomitant]
  13. CLONAZEPAM [Concomitant]
  14. ALLOPURINOL [Concomitant]

REACTIONS (13)
  - ASTHENIA [None]
  - BLOOD CALCIUM INCREASED [None]
  - BODY HEIGHT DECREASED [None]
  - BRONCHITIS [None]
  - COUGH [None]
  - FEELING ABNORMAL [None]
  - METASTATIC CARCINOMA OF THE BLADDER [None]
  - NASOPHARYNGITIS [None]
  - NEPHROLITHIASIS [None]
  - OXYGEN SATURATION DECREASED [None]
  - PLEURAL EFFUSION [None]
  - PNEUMONIA [None]
  - WEIGHT DECREASED [None]
